FAERS Safety Report 7392117-7 (Version None)
Quarter: 2011Q2

REPORT INFORMATION
  Report Type: 
  Country: None (occurrence: None)
  Receive Date: 20110404
  Receipt Date: 20110208
  Transmission Date: 20111010
  Serious: Yes (Hospitalization)
  Sender: FDA-Public Use
  Company Number: A0897071B

PATIENT
  Age: 57 Year
  Sex: Male
  Weight: 108.9 kg

DRUGS (2)
  1. ALBIGLUTIDE [Suspect]
     Route: 058
     Dates: start: 20100713, end: 20101215
  2. ACYCLOVIR [Suspect]
     Indication: ENCEPHALITIS HERPES
     Route: 042
     Dates: start: 20110204, end: 20110213

REACTIONS (2)
  - ENCEPHALITIS HERPES [None]
  - CELLULITIS [None]
